FAERS Safety Report 5088028-2 (Version None)
Quarter: 2006Q3

REPORT INFORMATION
  Report Type: 
  Country: None (occurrence: None)
  Receive Date: 20060824
  Receipt Date: 20060822
  Transmission Date: 20061208
  Serious: Yes (Other)
  Sender: FDA-Public Use
  Company Number: GB-BOEHRINGER INGELHEIM PHARMACEUTICALS, INC.-2006-UK-03628UK

PATIENT
  Age: 71 Year
  Sex: Female

DRUGS (3)
  1. MOBIC [Suspect]
     Indication: ARTHRALGIA
     Dosage: 15MG ONCE A DAY
     Route: 048
  2. LANSOPRAZOLE [Suspect]
     Indication: HIATUS HERNIA
     Route: 048
     Dates: start: 19970101, end: 20051201
  3. GAMANIL [Concomitant]
     Indication: DEPRESSION
     Dosage: 70 MG ONCE A DAY
     Route: 048

REACTIONS (4)
  - ANTINUCLEAR ANTIBODY POSITIVE [None]
  - ARTHRALGIA [None]
  - RED BLOOD CELL SEDIMENTATION RATE INCREASED [None]
  - SYSTEMIC LUPUS ERYTHEMATOSUS [None]
